FAERS Safety Report 9155660 (Version 2)
Quarter: 2013Q1

REPORT INFORMATION
  Report Type: Report from Study
  Country: US (occurrence: US)
  Receive Date: 20130311
  Receipt Date: 20130327
  Transmission Date: 20140127
  Serious: Yes (Other)
  Sender: FDA-Public Use
  Company Number: US-ASTRAZENECA-2013SE14330

PATIENT
  Age: 79 Year
  Sex: Female

DRUGS (3)
  1. TOPROL [Suspect]
     Indication: PALPITATIONS
     Route: 048
  2. TOPROL [Suspect]
     Indication: PALPITATIONS
     Dosage: GENERIC TOPROL
     Route: 065
  3. CARDIZEM [Suspect]
     Route: 065

REACTIONS (5)
  - Heart rate increased [Unknown]
  - Blood pressure increased [Unknown]
  - Adverse event [Unknown]
  - Drug ineffective [Unknown]
  - Product substitution issue [None]
